FAERS Safety Report 8674864 (Version 3)
Quarter: 2013Q2

REPORT INFORMATION
  Report Type: Spontaneous
  Country: JP (occurrence: JP)
  Receive Date: 20120720
  Receipt Date: 20130628
  Transmission Date: 20140414
  Serious: Yes (Hospitalization, Other)
  Sender: FDA-Public Use
  Company Number: JP-JNJFOC-20120519931

PATIENT
  Age: 1 Year
  Sex: Male
  Weight: 12.4 kg

DRUGS (6)
  1. REMICADE [Suspect]
     Indication: KAWASAKI^S DISEASE
     Route: 042
     Dates: start: 20110216
  2. REMICADE [Suspect]
     Indication: KAWASAKI^S DISEASE
     Route: 042
     Dates: start: 20110905
  3. HUMAN NORMAL IMMUNOGLOBULIN [Concomitant]
     Indication: KAWASAKI^S DISEASE
     Route: 042
  4. ALL OTHER THERAPEUTIC PRODUCTS [Concomitant]
     Indication: KAWASAKI^S DISEASE
     Route: 042
  5. ALL OTHER THERAPEUTIC PRODUCTS [Concomitant]
     Indication: KAWASAKI^S DISEASE
     Route: 065
  6. ASPIRIN [Concomitant]
     Route: 048
     Dates: start: 20110829, end: 20111019

REACTIONS (2)
  - Kawasaki^s disease [Recovering/Resolving]
  - Respiratory syncytial virus bronchiolitis [Recovering/Resolving]
